FAERS Safety Report 11218517 (Version 1)
Quarter: 2015Q2

REPORT INFORMATION
  Report Type: Spontaneous
  Country: US (occurrence: US)
  Receive Date: 20150625
  Receipt Date: 20150625
  Transmission Date: 20150821
  Serious: No
  Sender: FDA-Public Use
  Company Number: US-PFIZER INC-2015210891

PATIENT
  Age: 46 Year
  Sex: Female

DRUGS (2)
  1. XANAX XR [Suspect]
     Active Substance: ALPRAZOLAM
     Indication: ANXIETY
  2. XANAX XR [Suspect]
     Active Substance: ALPRAZOLAM
     Indication: SYSTEMIC LUPUS ERYTHEMATOSUS
     Dosage: UNK

REACTIONS (1)
  - Therapeutic response unexpected [Unknown]
